FAERS Safety Report 8710997 (Version 4)
Quarter: 2012Q4

REPORT INFORMATION
  Report Type: 
  Country: US (occurrence: US)
  Receive Date: 20120807
  Receipt Date: 20121003
  Transmission Date: 20130627
  Serious: Yes (Hospitalization, Other)
  Sender: FDA-Public Use
  Company Number: US-009507513-2012SP017349

PATIENT

DRUGS (1)
  1. NUVARING [Suspect]
     Indication: CONTRACEPTION
     Dosage: UNK
     Dates: start: 20071210, end: 2008

REACTIONS (22)
  - Convulsion [Unknown]
  - Pulmonary embolism [Unknown]
  - Deep vein thrombosis [Unknown]
  - Infection [Unknown]
  - Anxiety [Not Recovered/Not Resolved]
  - Depression [Not Recovered/Not Resolved]
  - Anaemia [Unknown]
  - Bronchitis [Not Recovered/Not Resolved]
  - Synovial cyst [Unknown]
  - Animal bite [Unknown]
  - Foot fracture [Unknown]
  - Insomnia [Unknown]
  - Attention deficit/hyperactivity disorder [Unknown]
  - Alcoholism [Unknown]
  - Dental caries [Unknown]
  - Night sweats [Unknown]
  - Gestational diabetes [Unknown]
  - Anticoagulation drug level below therapeutic [Unknown]
  - Drug dependence [Not Recovered/Not Resolved]
  - Streptococcus test positive [Unknown]
  - Pneumonia [Unknown]
  - Pain management [Unknown]
